FAERS Safety Report 19311044 (Version 4)
Quarter: 2022Q1

REPORT INFORMATION
  Report Type: Spontaneous
  Country: ES (occurrence: ES)
  Receive Date: 20210526
  Receipt Date: 20220218
  Transmission Date: 20220423
  Serious: Yes (Other)
  Sender: FDA-Public Use
  Company Number: ES-GLAXOSMITHKLINE-ES2020EME173157

PATIENT
  Age: 62 Year
  Sex: Male

DRUGS (21)
  1. ESCITALOPRAM [Suspect]
     Active Substance: ESCITALOPRAM OXALATE
     Indication: Product used for unknown indication
     Dosage: UNK ()
     Route: 065
  2. MONTELUKAST [Suspect]
     Active Substance: MONTELUKAST SODIUM
     Indication: Product used for unknown indication
     Dosage: UNK ()
     Route: 065
  3. VALSARTAN [Suspect]
     Active Substance: VALSARTAN
     Indication: Product used for unknown indication
     Dosage: UNK ()
     Route: 065
  4. PANTOPRAZOLE SODIUM [Suspect]
     Active Substance: PANTOPRAZOLE SODIUM
     Indication: Product used for unknown indication
     Dosage: UNK ()
     Route: 065
  5. SPIRIVA [Suspect]
     Active Substance: TIOTROPIUM BROMIDE MONOHYDRATE
     Indication: Product used for unknown indication
     Dosage: UNK ()
     Route: 065
  6. SPIRIVA [Suspect]
     Active Substance: TIOTROPIUM BROMIDE MONOHYDRATE
     Indication: Product used for unknown indication
     Dosage: UNK ()
     Route: 065
  7. SPIRIVA [Suspect]
     Active Substance: TIOTROPIUM BROMIDE MONOHYDRATE
     Indication: Product used for unknown indication
     Dosage: UNK ()
     Route: 065
  8. ALBUTEROL [Suspect]
     Active Substance: ALBUTEROL
     Indication: Product used for unknown indication
     Dosage: UNK ()
     Route: 065
  9. MEPOLIZUMAB [Suspect]
     Active Substance: MEPOLIZUMAB
     Indication: Product used for unknown indication
     Dosage: 100 MG, Z, 1ML / 28 DAYS
     Route: 058
     Dates: start: 20200520
  10. OTILONIUM BROMIDE [Suspect]
     Active Substance: OTILONIUM BROMIDE
     Indication: Product used for unknown indication
     Dosage: UNK ()
     Route: 065
  11. OTILONIUM BROMIDE [Suspect]
     Active Substance: OTILONIUM BROMIDE
     Dosage: UNK ()
     Route: 065
  12. OTILONIUM BROMIDE [Suspect]
     Active Substance: OTILONIUM BROMIDE
     Dosage: UNK ()
     Route: 065
  13. PREDNISONE [Suspect]
     Active Substance: PREDNISONE
     Indication: Product used for unknown indication
     Dosage: UNK ()
     Route: 065
  14. PREDNISONE [Suspect]
     Active Substance: PREDNISONE
     Indication: Product used for unknown indication
     Dosage: UNK ()
     Route: 065
  15. PREDNISONE [Suspect]
     Active Substance: PREDNISONE
     Indication: Product used for unknown indication
     Dosage: UNK ()
     Route: 065
  16. BILASTINE [Suspect]
     Active Substance: BILASTINE
     Indication: Product used for unknown indication
     Dosage: UNK ()
     Route: 065
  17. FOSTER [Suspect]
     Active Substance: BECLOMETHASONE\FORMOTEROL
     Indication: Product used for unknown indication
     Dosage: UNK ()
     Route: 065
  18. LORAZEPAM [Suspect]
     Active Substance: LORAZEPAM
     Indication: Product used for unknown indication
     Dosage: UNK ()
     Route: 065
  19. PECTOX LISINA [Concomitant]
     Dosage: UNK ()
     Route: 065
  20. PECTOX LISINA [Concomitant]
     Dosage: UNK ()
     Route: 065
  21. PECTOX LISINA [Concomitant]
     Indication: Product used for unknown indication
     Dosage: UNK ()
     Route: 065

REACTIONS (12)
  - Secretion discharge [Not Recovered/Not Resolved]
  - Choking sensation [Not Recovered/Not Resolved]
  - Suicidal ideation [Not Recovered/Not Resolved]
  - Haematoma [Not Recovered/Not Resolved]
  - Depression [Not Recovered/Not Resolved]
  - Weight increased [Not Recovered/Not Resolved]
  - Malaise [Not Recovered/Not Resolved]
  - Drug ineffective [Unknown]
  - Contusion [Not Recovered/Not Resolved]
  - Headache [Recovering/Resolving]
  - Asphyxia [Recovering/Resolving]
  - Cough [Recovering/Resolving]

NARRATIVE: CASE EVENT DATE: 20210801
